FAERS Safety Report 16852342 (Version 1)
Quarter: 2019Q3

REPORT INFORMATION
  Report Type: Spontaneous
  Country: FR (occurrence: FR)
  Receive Date: 20190925
  Receipt Date: 20190925
  Transmission Date: 20191005
  Serious: Yes (Hospitalization, Other)
  Sender: FDA-Public Use
  Company Number: PHHY2019FR220719

PATIENT
  Age: 32 Year
  Sex: Female

DRUGS (10)
  1. ARA-C [Suspect]
     Active Substance: CYTARABINE
     Indication: BONE MARROW CONDITIONING REGIMEN
  2. AMSACRINE [Suspect]
     Active Substance: AMSACRINE
     Indication: BONE MARROW CONDITIONING REGIMEN
     Dosage: UNK
     Route: 065
  3. AMSACRINE [Suspect]
     Active Substance: AMSACRINE
     Indication: AUTOLOGOUS HAEMATOPOIETIC STEM CELL TRANSPLANT
  4. FLUDARABINE [Suspect]
     Active Substance: FLUDARABINE PHOSPHATE
     Indication: AUTOLOGOUS HAEMATOPOIETIC STEM CELL TRANSPLANT
     Dosage: UNK
     Route: 065
  5. FLUDARABINE [Suspect]
     Active Substance: FLUDARABINE PHOSPHATE
     Indication: BONE MARROW CONDITIONING REGIMEN
  6. ARA-C [Suspect]
     Active Substance: CYTARABINE
     Indication: AUTOLOGOUS HAEMATOPOIETIC STEM CELL TRANSPLANT
     Dosage: UNK, INTERMEDIATE DOSE
     Route: 065
  7. ENDOXAN [Suspect]
     Active Substance: CYCLOPHOSPHAMIDE
     Indication: AUTOLOGOUS HAEMATOPOIETIC STEM CELL TRANSPLANT
  8. BUSULFAN. [Suspect]
     Active Substance: BUSULFAN
     Indication: BONE MARROW CONDITIONING REGIMEN
  9. ENDOXAN [Suspect]
     Active Substance: CYCLOPHOSPHAMIDE
     Indication: BONE MARROW CONDITIONING REGIMEN
     Dosage: UNK
     Route: 065
  10. BUSULFAN. [Suspect]
     Active Substance: BUSULFAN
     Indication: AUTOLOGOUS HAEMATOPOIETIC STEM CELL TRANSPLANT
     Dosage: UNK
     Route: 065

REACTIONS (7)
  - Multiple organ dysfunction syndrome [Unknown]
  - Multiple organ dysfunction syndrome [Recovered/Resolved]
  - Septic shock [Recovered/Resolved]
  - Escherichia infection [Unknown]
  - Escherichia sepsis [Recovered/Resolved]
  - Neutropenic colitis [Unknown]
  - Neutropenia [Recovered/Resolved]
